FAERS Safety Report 17113857 (Version 2)
Quarter: 2019Q4

REPORT INFORMATION
  Report Type: Spontaneous
  Country: US (occurrence: US)
  Receive Date: 20191205
  Receipt Date: 20191216
  Transmission Date: 20200122
  Serious: Yes (Other)
  Sender: FDA-Public Use
  Company Number: US-HBP-2019US019164

PATIENT
  Sex: Male

DRUGS (1)
  1. VALCHLOR [Suspect]
     Active Substance: MECHLORETHAMINE
     Indication: CUTANEOUS T-CELL LYMPHOMA
     Dosage: TOPICAL FILM, ONCE NIGHTLY
     Route: 061

REACTIONS (11)
  - Vomiting [Unknown]
  - Dry skin [Unknown]
  - Malignant neoplasm progression [Unknown]
  - Application site exfoliation [Unknown]
  - Pruritus [Unknown]
  - Insomnia [Unknown]
  - Skin irritation [Unknown]
  - Drug ineffective [Unknown]
  - Piloerection [Unknown]
  - Nausea [Unknown]
  - Feeling cold [Unknown]
